FAERS Safety Report 7992029-1 (Version None)
Quarter: 2011Q4

REPORT INFORMATION
  Report Type: 
  Country: None (occurrence: None)
  Receive Date: 20111219
  Receipt Date: 20111014
  Transmission Date: 20120403
  Serious: No
  Sender: FDA-Public Use
  Company Number: US-ASTRAZENECA-2011SE62128

PATIENT
  Age: 69 Year
  Sex: Female
  Weight: 53.1 kg

DRUGS (8)
  1. ASPIRIN [Concomitant]
  2. CRESTOR [Suspect]
     Route: 048
  3. CENTRUM SILVER [Concomitant]
  4. CRESTOR [Suspect]
     Indication: BLOOD CHOLESTEROL INCREASED
     Route: 048
  5. CITRACAL [Concomitant]
  6. CRESTOR [Suspect]
     Route: 048
  7. FISH OIL [Concomitant]
  8. LEVOXYL [Concomitant]

REACTIONS (11)
  - WEIGHT INCREASED [None]
  - FAECES DISCOLOURED [None]
  - POOR QUALITY SLEEP [None]
  - CHROMATURIA [None]
  - HEADACHE [None]
  - NAUSEA [None]
  - MYALGIA [None]
  - SPEECH DISORDER [None]
  - FATIGUE [None]
  - THYROID NEOPLASM [None]
  - BACK PAIN [None]
